FAERS Safety Report 15406204 (Version 1)
Quarter: 2018Q3

REPORT INFORMATION
  Report Type: Spontaneous
  Country: US (occurrence: US)
  Receive Date: 20180920
  Receipt Date: 20180920
  Transmission Date: 20181010
  Serious: Yes (Other)
  Sender: FDA-Public Use
  Company Number: US-009507513-1809USA006449

PATIENT
  Age: 70 Year
  Sex: Male

DRUGS (1)
  1. TICE BCG [Suspect]
     Active Substance: BACILLUS CALMETTE-GUERIN SUBSTRAIN TICE LIVE ANTIGEN
     Indication: BLADDER CANCER
     Route: 043

REACTIONS (4)
  - Disseminated Bacillus Calmette-Guerin infection [Unknown]
  - Bacterial sepsis [Unknown]
  - Granuloma [Unknown]
  - Hypercalcaemia [Recovered/Resolved]
